FAERS Safety Report 7933162 (Version 3)
Quarter: 2012Q4

REPORT INFORMATION
  Report Type: 
  Country: US (occurrence: US)
  Receive Date: 20110506
  Receipt Date: 20120917
  Transmission Date: 20130627
  Serious: Yes (Life-Threatening, Hospitalization)
  Sender: FDA-Public Use
  Company Number: US-BAYER-2011-038402

PATIENT
  Age: 22 Year
  Sex: Female
  Weight: 63.49 kg

DRUGS (4)
  1. YAZ [Suspect]
     Indication: CONTRACEPTION
     Dosage: UNK
     Route: 048
     Dates: start: 20080420, end: 20080720
  2. EXCEDRIN EXTRA STRENGTH [Concomitant]
  3. APAP [Concomitant]
  4. NORTRIPTYLINE [Concomitant]

REACTIONS (25)
  - Cerebrovascular accident [None]
  - Cerebral artery thrombosis [None]
  - Ischaemic stroke [None]
  - Brain injury [None]
  - Cognitive disorder [None]
  - Injury [None]
  - Pain [None]
  - Anxiety [None]
  - Muscular weakness [None]
  - Facial paresis [None]
  - Sensation of heaviness [None]
  - Motor dysfunction [None]
  - Dizziness [None]
  - Vertigo [None]
  - Balance disorder [None]
  - Headache [None]
  - Clumsiness [None]
  - Coordination abnormal [None]
  - Fatigue [None]
  - Asthenia [None]
  - Speech disorder [None]
  - Amnesia [None]
  - Confusional state [None]
  - Mental impairment [None]
  - Depression [None]
